FAERS Safety Report 5725878-0 (Version None)
Quarter: 2008Q2

REPORT INFORMATION
  Report Type: 
  Country: None (occurrence: None)
  Receive Date: 20080430
  Receipt Date: 20080418
  Transmission Date: 20081010
  Serious: Yes (Other)
  Sender: FDA-Public Use
  Company Number: 2008010295

PATIENT
  Age: 32 Year
  Sex: Female
  Weight: 61.2 kg

DRUGS (3)
  1. BENADRYL [Suspect]
  2. CHANTIX [Suspect]
     Indication: SMOKING CESSATION THERAPY
     Dates: start: 20080321, end: 20080405
  3. CONTRACEPTIVE, UNSPECIFIED (CONTRACEPTIVE, UNSPECIFIED) [Concomitant]

REACTIONS (3)
  - SINUS HEADACHE [None]
  - SOMNOLENCE [None]
  - URTICARIA [None]
